FAERS Safety Report 21460552 (Version 1)
Quarter: 2022Q4

REPORT INFORMATION
  Report Type: Spontaneous
  Country: US (occurrence: US)
  Receive Date: 20221015
  Receipt Date: 20221015
  Transmission Date: 20230112
  Serious: No
  Sender: FDA-Public Use
  Company Number: US-PADAGIS-2022PAD00753

PATIENT

DRUGS (2)
  1. KETOCONAZOLE [Suspect]
     Active Substance: KETOCONAZOLE
     Indication: Alopecia scarring
     Dosage: THRICE PER WEEK
     Route: 065
  2. CLOBETASOL PROPIONATE [Suspect]
     Active Substance: CLOBETASOL PROPIONATE
     Indication: Alopecia scarring
     Dosage: BID, THEN AS NEEDED
     Route: 065

REACTIONS (1)
  - Drug ineffective for unapproved indication [Unknown]
